FAERS Safety Report 16973476 (Version 1)
Quarter: 2019Q4

REPORT INFORMATION
  Report Type: Spontaneous
  Country: US (occurrence: US)
  Receive Date: 20190912
  Receipt Date: 20190912
  Transmission Date: 20200122
  Serious: No
  Sender: FDA-Public Use
  Company Number: None

PATIENT
  Age: 62 Year
  Sex: Female

DRUGS (1)
  1. PROLIA [Suspect]
     Active Substance: DENOSUMAB
     Indication: OSTEOPOROSIS
     Route: 058
     Dates: start: 201401

REACTIONS (4)
  - Urticaria [None]
  - Arthralgia [None]
  - Muscular weakness [None]
  - Amnesia [None]

NARRATIVE: CASE EVENT DATE: 20190912
